FAERS Safety Report 26030791 (Version 1)
Quarter: 2025Q4

REPORT INFORMATION
  Report Type: Spontaneous
  Country: US (occurrence: US)
  Receive Date: 20251112
  Receipt Date: 20251112
  Transmission Date: 20260118
  Serious: No
  Sender: JIANGSU HENGRUI
  Company Number: US-JIANGSU HENGRUI PHARMACEUTICALS CO., LTD.-H2025001207710

PATIENT
  Age: 49 Year

DRUGS (1)
  1. GADOTERATE MEGLUMINE [Suspect]
     Active Substance: GADOTERATE MEGLUMINE
     Indication: Arthrogram
     Dosage: 0.1 ML, SINGLE

REACTIONS (1)
  - Drug effect less than expected [Unknown]
